FAERS Safety Report 5956221-X (Version None)
Quarter: 2008Q4

REPORT INFORMATION
  Report Type: 
  Country: None (occurrence: None)
  Receive Date: 20081118
  Receipt Date: 20081114
  Transmission Date: 20090506
  Serious: Yes (Other)
  Sender: FDA-Public Use
  Company Number: US-BIOGENIDEC-2008BI014409

PATIENT
  Age: 26 Year
  Sex: Female

DRUGS (2)
  1. AVONEX [Suspect]
     Indication: MULTIPLE SCLEROSIS
     Route: 030
     Dates: start: 20050901, end: 20070713
  2. AVONEX [Suspect]
     Route: 030
     Dates: start: 20080601

REACTIONS (4)
  - BREECH PRESENTATION [None]
  - MENSTRUATION IRREGULAR [None]
  - THROMBOCYTOPENIA [None]
  - UTERINE RUPTURE [None]
